FAERS Safety Report 9156402 (Version 1)
Quarter: 2013Q1

REPORT INFORMATION
  Report Type: Spontaneous
  Country: DK (occurrence: None)
  Receive Date: 20130208
  Receipt Date: 20130208
  Transmission Date: 20140127
  Serious: Yes (Other)
  Sender: FDA-Public Use
  Company Number: 2013MA000942

PATIENT
  Age: 53 Year
  Sex: Male

DRUGS (4)
  1. ISOSORBIDE MONONITRATE [Suspect]
     Route: 048
     Dates: start: 20121022
  2. ACETYLSALICYLIC ACID [Concomitant]
  3. BISOPROLOL [Concomitant]
  4. ATORVASTATIN [Concomitant]

REACTIONS (2)
  - Cardiac disorder [None]
  - Arrhythmia [None]
